FAERS Safety Report 4920016-6 (Version None)
Quarter: 2006Q1

REPORT INFORMATION
  Report Type: 
  Country: None (occurrence: None)
  Receive Date: 20060223
  Receipt Date: 20060123
  Transmission Date: 20060701
  Serious: Yes (Hospitalization, Other)
  Sender: FDA-Public Use
  Company Number: 2006CG00169

PATIENT
  Age: 30467 Day
  Sex: Female
  Weight: 70 kg

DRUGS (1)
  1. ARIMIDEX [Suspect]
     Indication: BREAST CANCER
     Route: 048
     Dates: start: 20051229, end: 20060123

REACTIONS (2)
  - PHLEBITIS [None]
  - PULMONARY EMBOLISM [None]
